FAERS Safety Report 9777922 (Version 2)
Quarter: 2013Q4

REPORT INFORMATION
  Report Type: Report from Study
  Country: CA (occurrence: CA)
  Receive Date: 20131223
  Receipt Date: 20131223
  Transmission Date: 20140711
  Serious: Yes (Life-Threatening, Hospitalization, Other)
  Sender: FDA-Public Use
  Company Number: CA-ROCHE-1312768

PATIENT
  Age: 58 Year
  Sex: Female

DRUGS (4)
  1. PEGASYS [Suspect]
     Indication: CHRONIC HEPATITIS C
     Route: 058
     Dates: start: 20130221, end: 201304
  2. RIBAVIRIN [Suspect]
     Indication: CHRONIC HEPATITIS C
     Route: 065
     Dates: start: 20130221, end: 201304
  3. INCIVEK [Suspect]
     Indication: CHRONIC HEPATITIS C
     Route: 048
     Dates: start: 20130221, end: 201304
  4. OXYNEO [Concomitant]

REACTIONS (6)
  - Hepatic failure [Not Recovered/Not Resolved]
  - Anaemia [Recovered/Resolved]
  - Sepsis [Unknown]
  - Cystitis [Unknown]
  - Disease progression [Not Recovered/Not Resolved]
  - Platelet count decreased [Unknown]
